FAERS Safety Report 17074667 (Version 1)
Quarter: 2019Q4

REPORT INFORMATION
  Report Type: Spontaneous
  Country: US (occurrence: US)
  Receive Date: 20191126
  Receipt Date: 20191126
  Transmission Date: 20200122
  Serious: No
  Sender: FDA-Public Use
  Company Number: US-DRREDDYS-USA/USA/19/0116269

PATIENT
  Age: 20 Year
  Sex: Male

DRUGS (1)
  1. BUPRENORPHINE AND NALOXONE SUBLINGUAL FILM 4 MG/1 MG AND 12 MG/3 MG [Suspect]
     Active Substance: BUPRENORPHINE\NALOXONE
     Indication: DRUG WITHDRAWAL SYNDROME
     Route: 060
     Dates: start: 2018

REACTIONS (2)
  - Dysphagia [Recovered/Resolved]
  - Dizziness [Recovered/Resolved]

NARRATIVE: CASE EVENT DATE: 2018
